FAERS Safety Report 7647365-5 (Version None)
Quarter: 2011Q3

REPORT INFORMATION
  Report Type: 
  Country: None (occurrence: None)
  Receive Date: 20110801
  Receipt Date: 20110719
  Transmission Date: 20111222
  Serious: Yes (Hospitalization)
  Sender: FDA-Public Use
  Company Number: US-ROCHE-792924

PATIENT
  Age: 68 Year
  Sex: Female
  Weight: 56.4 kg

DRUGS (3)
  1. CISPLATIN [Suspect]
     Indication: OVARIAN EPITHELIAL CANCER
     Dosage: 75 MG1M2 ON DAY 2
     Route: 065
  2. PACLITAXEL [Suspect]
     Indication: OVARIAN EPITHELIAL CANCER
     Dosage: 60MG/M2 ON DAY 8
     Route: 065
  3. BEVACIZUMAB [Suspect]
     Indication: OVARIAN EPITHELIAL CANCER
     Dosage: OVER 30-90 MIN ON DAY 1 BEGINNING WITH CYCLE 2, LAST DOSE : 26 APRIL 2011, TOTAL DOSE: 797 MG
     Route: 042
     Dates: start: 20100629

REACTIONS (2)
  - SPEECH DISORDER [None]
  - PHOTOPSIA [None]
